FAERS Safety Report 23740043 (Version 3)
Quarter: 2024Q2

REPORT INFORMATION
  Report Type: Spontaneous
  Country: GR (occurrence: GR)
  Receive Date: 20240414
  Receipt Date: 20240531
  Transmission Date: 20240716
  Serious: Yes (Other)
  Sender: FDA-Public Use
  Company Number: GR-JNJFOC-20240420771

PATIENT
  Age: 61 Year
  Sex: Female

DRUGS (1)
  1. TECVAYLI [Suspect]
     Active Substance: TECLISTAMAB-CQYV
     Indication: Product used for unknown indication
     Route: 065

REACTIONS (7)
  - Pulmonary oedema [Not Recovered/Not Resolved]
  - Encephalitis [Unknown]
  - Intussusception [Unknown]
  - Cytokine release syndrome [Not Recovered/Not Resolved]
  - Sinusitis [Recovering/Resolving]
  - Otitis media [Recovering/Resolving]
  - Mastitis [Unknown]
